FAERS Safety Report 25097655 (Version 1)
Quarter: 2025Q1

REPORT INFORMATION
  Report Type: Other
  Country: PH (occurrence: PH)
  Receive Date: 20250320
  Receipt Date: 20250320
  Transmission Date: 20250408
  Serious: Yes (Hospitalization, Other)
  Sender: ANI
  Company Number: PH-ANIPHARMA-016037

PATIENT
  Age: 57 Year
  Sex: Female

DRUGS (6)
  1. POTASSIUM [Suspect]
     Active Substance: POTASSIUM
     Indication: Hypokalaemia
  2. PROPYLTHIOURACIL [Concomitant]
     Active Substance: PROPYLTHIOURACIL
     Indication: Hyperthyroidism
  3. HYDROCORTISONE [Concomitant]
     Active Substance: HYDROCORTISONE
     Indication: Hyperthyroidism
  4. POTASSIUM [Suspect]
     Active Substance: POTASSIUM
     Indication: Hypokalaemia
  5. POTASSIUM [Suspect]
     Active Substance: POTASSIUM
     Indication: Hypokalaemia
     Route: 048
  6. POTASSIUM [Suspect]
     Active Substance: POTASSIUM
     Indication: Hypokalaemia

REACTIONS (3)
  - Tachycardia [Unknown]
  - Hyperkalaemia [Unknown]
  - Cardio-respiratory arrest [Unknown]
